FAERS Safety Report 8838007 (Version 1)
Quarter: 2012Q4

REPORT INFORMATION
  Report Type: 
  Country: US (occurrence: US)
  Receive Date: 20121012
  Receipt Date: 20121012
  Transmission Date: 20130627
  Serious: Yes (Hospitalization)
  Sender: FDA-Public Use
  Company Number: US-ROCHE-1124098

PATIENT
  Sex: Female
  Weight: 29.2 kg

DRUGS (1)
  1. NUTROPIN [Suspect]
     Indication: DWARFISM
     Route: 058
     Dates: start: 199806

REACTIONS (2)
  - Gastroenteritis viral [Unknown]
  - Dehydration [Unknown]
